FAERS Safety Report 16462613 (Version 1)
Quarter: 2019Q2

REPORT INFORMATION
  Report Type: Spontaneous
  Country: US (occurrence: US)
  Receive Date: 20190511
  Receipt Date: 20190511
  Transmission Date: 20190711
  Serious: No
  Sender: FDA-Public Use
  Company Number: None

PATIENT
  Age: 62 Year
  Sex: Male

DRUGS (1)
  1. MAVYRET [Suspect]
     Active Substance: GLECAPREVIR\PIBRENTASVIR
     Indication: CHRONIC HEPATITIS C
     Dates: start: 201903

REACTIONS (5)
  - Dry skin [None]
  - Chemical burn [None]
  - Bone pain [None]
  - Erythema [None]
  - Pain in extremity [None]

NARRATIVE: CASE EVENT DATE: 20190511
